FAERS Safety Report 6819309-7 (Version None)
Quarter: 2010Q2

REPORT INFORMATION
  Report Type: 
  Country: None (occurrence: None)
  Receive Date: 20100630
  Receipt Date: 20100630
  Transmission Date: 20101027
  Serious: Yes (Other)
  Sender: FDA-Public Use
  Company Number: 1022556-2010-00040

PATIENT
  Age: 56 Year
  Sex: Male

DRUGS (1)
  1. GB PAIN RELIEVING FOOT ROLL ON 2.5 OZ [Suspect]
     Indication: MYALGIA
     Dosage: TOPICAL
     Route: 061

REACTIONS (3)
  - APPLICATION SITE ERYTHEMA [None]
  - APPLICATION SITE EXFOLIATION [None]
  - BACK PAIN [None]
